FAERS Safety Report 11849153 (Version 1)
Quarter: 2015Q4

REPORT INFORMATION
  Report Type: Spontaneous
  Country: US (occurrence: None)
  Receive Date: 20151217
  Receipt Date: 20151217
  Transmission Date: 20160305
  Serious: Yes (Other)
  Sender: FDA-Public Use
  Company Number: None

PATIENT
  Age: 68 Year
  Sex: Male
  Weight: 79.38 kg

DRUGS (30)
  1. VITAMIN B COMPLEX [Concomitant]
     Active Substance: CYANOCOBALAMIN\DEXPANTHENOL\NIACINAMIDE\PYRIDOXINE HYDROCHLORIDE\RIBOFLAVIN 5^-PHOSPHATE SODIUM\THIAMINE HYDROCHLORIDE\VITAMIN B COMPLEX
  2. VITAMIN C [Concomitant]
     Active Substance: ASCORBIC ACID
  3. BREATH FREE (ANGELICA, BUCKTHORN, CELANDINE, ROSEMARY, CENTUARY, SPEEDWELL, WILD PLUM) [Concomitant]
  4. CAYENNE [Concomitant]
  5. FISH OIL [Concomitant]
     Active Substance: FISH OIL
  6. HAWTHORN [Concomitant]
  7. SAW PALMETTO [Concomitant]
     Active Substance: SAW PALMETTO
  8. SUPREP BOWEL PREP [Suspect]
     Active Substance: MAGNESIUM SULFATE\POTASSIUM SULFATE\SODIUM SULFATE
     Indication: BOWEL PREPARATION
     Dosage: STANDARD, OTHER
     Route: 048
     Dates: start: 20150802, end: 20150803
  9. DOLOMITE (CALCIUM/MAGNESIUM) [Concomitant]
  10. D3 [Concomitant]
     Active Substance: 25-HYDROXYCHOLECALCIFEROL, 5-TRANS-
  11. COQ10 [Concomitant]
     Active Substance: UBIDECARENONE
  12. TURMERIC/CURCUMIN [Concomitant]
  13. VIT. A [Concomitant]
  14. SUPREP BOWEL PREP [Suspect]
     Active Substance: MAGNESIUM SULFATE\POTASSIUM SULFATE\SODIUM SULFATE
     Indication: COLONOSCOPY
     Dosage: STANDARD, OTHER
     Route: 048
     Dates: start: 20150802, end: 20150803
  15. CAT^S CLAW BARK [Concomitant]
  16. ELECAMPANE ROOT [Concomitant]
  17. YERBA SANTA LEAVES [Concomitant]
  18. FLAX OIL [Concomitant]
  19. VITAMIN B12 [Concomitant]
     Active Substance: CYANOCOBALAMIN
  20. MACA ROOT [Concomitant]
  21. GTF CHROMIUM [Concomitant]
  22. TRACE MINERALS (CALCIUM, CHLORIDE, SODIUM, POTASSIUM, LOW-SODIUM CONCENTRACE (72 MINERALS) ALFALFA LEAF, KELP, SULFATE, BORON) [Concomitant]
  23. GLUCOSAMINE CHONDROITIN MSN [Concomitant]
  24. BOSWELLA [Concomitant]
  25. DEVIL^S CLAW ROOT [Concomitant]
  26. FENUGREEK SEED [Concomitant]
     Active Substance: FENUGREEK SEED
  27. PROSTAID PLUS (FLAX, SAW PALMETTO, ST. JOHN^S WORT, ELDER, CALENDULA [Concomitant]
  28. VITAMIN E [Concomitant]
     Active Substance: .ALPHA.-TOCOPHEROL
  29. FOLIC ACID. [Concomitant]
     Active Substance: FOLIC ACID
  30. OIL OF OREGANO [Concomitant]

REACTIONS (8)
  - Abdominal distension [None]
  - Pyrexia [None]
  - Malaise [None]
  - Dysbacteriosis [None]
  - Feeding disorder [None]
  - Abnormal faeces [None]
  - Asthenia [None]
  - Weight decreased [None]

NARRATIVE: CASE EVENT DATE: 20150804
